FAERS Safety Report 10544275 (Version 3)
Quarter: 2015Q1

REPORT INFORMATION
  Report Type: Spontaneous
  Country: GB (occurrence: None)
  Receive Date: 20141023
  Receipt Date: 20150330
  Transmission Date: 20150720
  Serious: Yes (Hospitalization)
  Sender: FDA-Public Use
  Company Number: GB-H14001-14-01078

PATIENT
  Sex: Female

DRUGS (2)
  1. KEPPRA [Suspect]
     Active Substance: LEVETIRACETAM
     Indication: EPILEPSY
     Dates: start: 201409, end: 201411
  2. PHENYTOIN SODIUM. [Suspect]
     Active Substance: PHENYTOIN SODIUM
     Indication: PRODUCT USED FOR UNKNOWN INDICATION
     Dates: start: 201402, end: 201411

REACTIONS (6)
  - Epilepsy [None]
  - Fall [None]
  - Disturbance in attention [None]
  - No therapeutic response [None]
  - Inappropriate schedule of drug administration [None]
  - Fatigue [None]

NARRATIVE: CASE EVENT DATE: 2014
